FAERS Safety Report 10989123 (Version 2)
Quarter: 2015Q2

REPORT INFORMATION
  Report Type: Spontaneous
  Country: DE (occurrence: DE)
  Receive Date: 20150406
  Receipt Date: 20150506
  Transmission Date: 20150821
  Serious: Yes (Life-Threatening, Hospitalization)
  Sender: FDA-Public Use
  Company Number: DE-009507513-1504DEU000825

PATIENT
  Age: 52 Year
  Sex: Female
  Weight: 73 kg

DRUGS (7)
  1. JANUVIA [Suspect]
     Active Substance: SITAGLIPTIN PHOSPHATE
     Indication: TYPE 2 DIABETES MELLITUS
     Dosage: 100 MG, QD
     Route: 048
     Dates: start: 20130312, end: 2015
  2. DIABESIN [Concomitant]
     Indication: TYPE 2 DIABETES MELLITUS
     Dosage: 1700MG, QD
     Route: 048
     Dates: start: 1987
  3. OEKOLP [Concomitant]
     Dosage: 0.5-0-0
  4. BENALAPRIL [Concomitant]
     Dosage: 2.5 MG, QD
     Route: 048
  5. ALLOPURINOL. [Concomitant]
     Active Substance: ALLOPURINOL
     Dosage: 150 MG, QD
     Route: 048
  6. ACTRAPHANE [Concomitant]
     Active Substance: INSULIN HUMAN
     Indication: TYPE 2 DIABETES MELLITUS
     Dosage: 40-0-12
     Route: 058
     Dates: start: 2000
  7. DIGOSTADA [Concomitant]
     Dosage: 0.1 MG, QD
     Route: 048

REACTIONS (3)
  - Malignant neoplasm of unknown primary site [Unknown]
  - Malignant peritoneal neoplasm [Unknown]
  - Ileus [Unknown]

NARRATIVE: CASE EVENT DATE: 20150102
